FAERS Safety Report 5605317-0 (Version None)
Quarter: 2008Q1

REPORT INFORMATION
  Report Type: 
  Country: None (occurrence: None)
  Receive Date: 20080129
  Receipt Date: 20080121
  Transmission Date: 20080703
  Serious: Yes (Hospitalization, Other)
  Sender: FDA-Public Use
  Company Number: US-PFIZER INC-2008006060

PATIENT
  Sex: Male
  Weight: 113.63 kg

DRUGS (1)
  1. CELEBREX [Suspect]
     Indication: PAIN IN EXTREMITY
     Dates: start: 20071101, end: 20080101

REACTIONS (2)
  - BLOOD PRESSURE ABNORMAL [None]
  - HAEMATOCHEZIA [None]
